FAERS Safety Report 26102686 (Version 1)
Quarter: 2025Q4

REPORT INFORMATION
  Report Type: Spontaneous
  Country: EU (occurrence: EU)
  Receive Date: 20251128
  Receipt Date: 20251128
  Transmission Date: 20260118
  Serious: Yes (Other)
  Sender: PFIZER
  Company Number: EU-PFIZER INC-PV202500138439

PATIENT
  Age: 64 Year
  Sex: Female

DRUGS (3)
  1. LORLATINIB [Suspect]
     Active Substance: LORLATINIB
     Indication: Lung adenocarcinoma
     Dosage: 100 MG
     Dates: start: 202212, end: 2023
  2. LORLATINIB [Suspect]
     Active Substance: LORLATINIB
     Dosage: 75 MG
     Dates: start: 2023, end: 2025
  3. LORLATINIB [Suspect]
     Active Substance: LORLATINIB
     Dosage: 50 MG
     Dates: start: 2025

REACTIONS (13)
  - Lung adenocarcinoma [Unknown]
  - Malignant neoplasm oligoprogression [Unknown]
  - Metastases to kidney [Unknown]
  - Metastases to liver [Unknown]
  - Acute kidney injury [Recovering/Resolving]
  - Aphasia [Unknown]
  - Dysphemia [Unknown]
  - Vitreous floaters [Unknown]
  - Aspartate aminotransferase increased [Unknown]
  - Alanine aminotransferase increased [Unknown]
  - Blood cholesterol increased [Unknown]
  - Blood triglycerides increased [Unknown]
  - Low density lipoprotein increased [Unknown]

NARRATIVE: CASE EVENT DATE: 20240301
